FAERS Safety Report 6574224-1 (Version None)
Quarter: 2010Q1

REPORT INFORMATION
  Report Type: 
  Country: None (occurrence: None)
  Receive Date: 20100201
  Receipt Date: 20100119
  Transmission Date: 20100710
  Serious: Yes (Hospitalization)
  Sender: FDA-Public Use
  Company Number: 2010000260

PATIENT
  Age: 43 Year
  Sex: Female
  Weight: 206.6588 kg

DRUGS (2)
  1. NUVIGIL [Suspect]
     Indication: SCHIZOPHRENIA
     Dosage: 150 MG (150 MG, 1 IN 1 D), ORAL
     Route: 048
     Dates: start: 20090924
  2. OLANZAPINE [Concomitant]

REACTIONS (1)
  - SYNCOPE [None]
